FAERS Safety Report 6445889-X (Version None)
Quarter: 2009Q4

REPORT INFORMATION
  Report Type: 
  Country: None (occurrence: None)
  Receive Date: 20091119
  Receipt Date: 20081031
  Transmission Date: 20100525
  Serious: No
  Sender: FDA-Public Use
  Company Number: A0749652A

PATIENT
  Age: 53 Year
  Sex: Male
  Weight: 99.4 kg

DRUGS (3)
  1. BUPROPION HYDROCHLORIDE [Suspect]
     Indication: DEPRESSION
     Route: 048
  2. CYMBALTA [Suspect]
     Indication: DEPRESSION
     Route: 048
  3. BUPROPION HYDROCHLORIDE [Suspect]
     Route: 048

REACTIONS (6)
  - APATHY [None]
  - ASTHENIA [None]
  - DISINHIBITION [None]
  - DRUG INEFFECTIVE [None]
  - MALAISE [None]
  - SEXUAL DYSFUNCTION [None]
